FAERS Safety Report 20473758 (Version 3)
Quarter: 2022Q1

REPORT INFORMATION
  Report Type: Report from Study
  Country: IN (occurrence: IN)
  Receive Date: 20220215
  Receipt Date: 20220315
  Transmission Date: 20220424
  Serious: Yes (Life-Threatening, Hospitalization, Disabling, Other)
  Sender: FDA-Public Use
  Company Number: IN-BAXTER-2022BAX001694

PATIENT
  Age: 70 Year
  Sex: Male

DRUGS (1)
  1. CALCIUM CHLORIDE\DEXTROSE\MAGNESIUM CHLORIDE\SODIUM CHLORIDE\SODIUM LA [Suspect]
     Active Substance: CALCIUM CHLORIDE\DEXTROSE\MAGNESIUM CHLORIDE\SODIUM CHLORIDE\SODIUM LACTATE
     Indication: Renal failure
     Dosage: 2 BAGS
     Route: 033

REACTIONS (4)
  - COVID-19 [Recovering/Resolving]
  - Cerebrovascular accident [Recovering/Resolving]
  - Hemiplegia [Recovering/Resolving]
  - Ultrafiltration failure [Recovering/Resolving]

NARRATIVE: CASE EVENT DATE: 20220121
